FAERS Safety Report 4626691-8 (Version None)
Quarter: 2005Q2

REPORT INFORMATION
  Report Type: 
  Country: None (occurrence: None)
  Receive Date: 20050405
  Receipt Date: 20050324
  Transmission Date: 20051028
  Serious: Yes (Other)
  Sender: FDA-Public Use
  Company Number: US-JNJFOC-20050306496

PATIENT
  Sex: Female
  Weight: 86.64 kg

DRUGS (11)
  1. REMICADE [Suspect]
     Route: 042
  2. REMICADE [Suspect]
     Indication: CROHN'S DISEASE
     Route: 042
  3. SYNTHROID [Concomitant]
  4. LEXAPRO [Concomitant]
  5. PEPCID [Concomitant]
  6. SOMA [Concomitant]
  7. NARCO [Concomitant]
  8. TIGAN [Concomitant]
  9. TRAZIDONE [Concomitant]
  10. LISINOPRIL [Concomitant]
  11. BACLOFEN [Concomitant]

REACTIONS (1)
  - AMNESIA [None]
